FAERS Safety Report 7440579-9 (Version None)
Quarter: 2011Q2

REPORT INFORMATION
  Report Type: 
  Country: None (occurrence: None)
  Receive Date: 20110427
  Receipt Date: 20101116
  Transmission Date: 20111010
  Serious: Yes (Hospitalization)
  Sender: FDA-Public Use
  Company Number: B0685208A

PATIENT
  Age: 63 Year
  Sex: Female
  Weight: 43 kg

DRUGS (14)
  1. TAKEPRON [Concomitant]
     Dosage: 30MG PER DAY
     Route: 048
     Dates: start: 20081125, end: 20090225
  2. GLAKAY [Concomitant]
     Dosage: 45MG PER DAY
     Route: 048
     Dates: start: 20081125, end: 20090225
  3. ZOVIRAX [Concomitant]
     Dosage: 2.5G PER DAY
     Route: 048
     Dates: start: 20081125, end: 20090225
  4. MAXIPIME [Concomitant]
     Dosage: 4G PER DAY
     Route: 042
     Dates: start: 20081201, end: 20081203
  5. ALKERAN [Suspect]
     Indication: STEM CELL TRANSPLANT
     Dosage: 200MG PER DAY
     Route: 042
     Dates: start: 20081125, end: 20081126
  6. ALEVIATIN [Concomitant]
     Dosage: 250MG PER DAY
     Route: 042
     Dates: start: 20081127, end: 20081201
  7. ONEALFA [Concomitant]
     Dosage: 1MG PER DAY
     Route: 048
     Dates: start: 20081125, end: 20090225
  8. SLOW-K [Concomitant]
     Dosage: 1200MG PER DAY
     Route: 048
     Dates: start: 20081125, end: 20090225
  9. THEOLONG [Concomitant]
     Dosage: 400MG PER DAY
     Route: 048
     Dates: start: 20081125, end: 20090225
  10. GRAN [Concomitant]
     Dates: start: 20081128, end: 20081212
  11. MEROPENEM [Concomitant]
     Dosage: 2G PER DAY
     Route: 042
     Dates: start: 20081204, end: 20081211
  12. FUNGUARD [Concomitant]
     Dosage: 50MG PER DAY
     Route: 042
     Dates: start: 20081217, end: 20081225
  13. BENAMBAX [Concomitant]
     Dosage: 160MG PER DAY
     Dates: start: 20090216, end: 20090216
  14. DOGMATYL [Concomitant]
     Dosage: 150MG PER DAY
     Route: 048
     Dates: start: 20081125, end: 20090225

REACTIONS (2)
  - FEBRILE NEUTROPENIA [None]
  - TREMOR [None]
